FAERS Safety Report 7631563-0 (Version None)
Quarter: 2011Q3

REPORT INFORMATION
  Report Type: 
  Country: None (occurrence: None)
  Receive Date: 20110725
  Receipt Date: 20110719
  Transmission Date: 20111222
  Serious: Yes (Death)
  Sender: FDA-Public Use
  Company Number: JP-ASTELLAS-2011JP004849

PATIENT
  Age: 72 Year
  Sex: Female

DRUGS (3)
  1. PROGRAF [Suspect]
     Dosage: 1.5 MG, UNKNOWN/D
     Route: 048
  2. PREDNISOLONE [Concomitant]
     Dosage: 17.5 MG, UNKNOWN/D
     Route: 048
  3. MIZORIBINE [Concomitant]
     Dosage: 150 MG, UNKNOWN/D
     Route: 048

REACTIONS (1)
  - MENINGITIS CRYPTOCOCCAL [None]
